FAERS Safety Report 11484182 (Version 1)
Quarter: 2015Q3

REPORT INFORMATION
  Report Type: Spontaneous
  Country: US (occurrence: US)
  Receive Date: 20150903
  Receipt Date: 20150903
  Transmission Date: 20151125
  Serious: No
  Sender: FDA-Public Use
  Company Number: US-ELI_LILLY_AND_COMPANY-US201206007175

PATIENT
  Sex: Female

DRUGS (1)
  1. DULOXETINE HYDROCHLORIDE. [Suspect]
     Active Substance: DULOXETINE HYDROCHLORIDE
     Indication: MYALGIA
     Dosage: 30 MG PER DAY
     Dates: start: 20120527, end: 20120615

REACTIONS (5)
  - Stress [Unknown]
  - Dizziness [Recovered/Resolved]
  - Headache [Unknown]
  - Off label use [Unknown]
  - Hypokinesia [Unknown]
